FAERS Safety Report 10861981 (Version 1)
Quarter: 2015Q1

REPORT INFORMATION
  Report Type: Spontaneous
  Country: US (occurrence: US)
  Receive Date: 20150224
  Receipt Date: 20150224
  Transmission Date: 20150721
  Serious: Yes (Hospitalization)
  Sender: FDA-Public Use
  Company Number: US-RB-073353-15

PATIENT
  Age: 48 Year
  Sex: Female

DRUGS (1)
  1. MUCINEX [Suspect]
     Active Substance: GUAIFENESIN
     Indication: RESPIRATORY TRACT CONGESTION
     Dosage: AS DIRECTED. TOOK A DOSE ON AN UNSPECIFIED DATE IN APRIL OF 2012 OR 2013.
     Route: 065

REACTIONS (5)
  - Dizziness [Unknown]
  - Dyspnoea [Unknown]
  - Adverse drug reaction [Unknown]
  - Fall [Unknown]
  - Malaise [Unknown]
